FAERS Safety Report 6181547-7 (Version None)
Quarter: 2009Q2

REPORT INFORMATION
  Report Type: 
  Country: None (occurrence: None)
  Receive Date: 20090506
  Receipt Date: 20090428
  Transmission Date: 20091009
  Serious: Yes (Other)
  Sender: FDA-Public Use
  Company Number: US-JNJFOC-20090500237

PATIENT
  Age: 38 Year
  Sex: Female
  Weight: 58.06 kg

DRUGS (1)
  1. TYLENOL ALLERGY MULTI-SYMPTOM RAPID RELEASE [Suspect]
     Indication: MULTIPLE ALLERGIES
     Route: 048

REACTIONS (2)
  - ANAPHYLACTIC REACTION [None]
  - REACTION TO DRUG EXCIPIENTS [None]
